FAERS Safety Report 20900606 (Version 5)
Quarter: 2022Q3

REPORT INFORMATION
  Report Type: Spontaneous
  Country: US (occurrence: US)
  Receive Date: 20220601
  Receipt Date: 20220823
  Transmission Date: 20221026
  Serious: No
  Sender: FDA-Public Use
  Company Number: US-PFIZER INC-202200717741

PATIENT
  Age: 52 Year
  Sex: Male
  Weight: 108.86 kg

DRUGS (1)
  1. SOMAVERT [Suspect]
     Active Substance: PEGVISOMANT
     Indication: Acromegaly
     Dosage: 30 MG, DAILY (UPPER ARM ALTERNATE TO UPPER THIGH)
     Route: 058

REACTIONS (2)
  - Device leakage [Unknown]
  - Device physical property issue [Unknown]
